FAERS Safety Report 23089870 (Version 1)
Quarter: 2023Q4

REPORT INFORMATION
  Report Type: Spontaneous
  Country: US (occurrence: None)
  Receive Date: 20231019
  Receipt Date: 20231019
  Transmission Date: 20240110
  Serious: Yes (Hospitalization)
  Sender: FDA-Public Use
  Company Number: None

PATIENT
  Age: 74 Year
  Sex: Male

DRUGS (1)
  1. SIMVASTATIN [Suspect]
     Active Substance: SIMVASTATIN
     Dosage: FREQUENCY : AT BEDTIME;?
     Route: 048
     Dates: start: 20221102, end: 20221207

REACTIONS (1)
  - Myalgia [None]

NARRATIVE: CASE EVENT DATE: 20221208
